FAERS Safety Report 18647267 (Version 2)
Quarter: 2020Q4

REPORT INFORMATION
  Report Type: Spontaneous
  Country: US (occurrence: US)
  Receive Date: 20201222
  Receipt Date: 20201223
  Transmission Date: 20210114
  Serious: No
  Sender: FDA-Public Use
  Company Number: US-JNJFOC-20201222899

PATIENT
  Sex: Male

DRUGS (1)
  1. MENS ROGAINE EXTRA STRENGTH [Suspect]
     Active Substance: MINOXIDIL
     Indication: ALOPECIA
     Dosage: LITTLE BIT IN HAND, LIKE A QUARTER OR LESS
     Route: 061
     Dates: start: 20201120, end: 20201207

REACTIONS (5)
  - Expired product administered [Unknown]
  - Breast pain [Not Recovered/Not Resolved]
  - Breast swelling [Not Recovered/Not Resolved]
  - Breast enlargement [Unknown]
  - Chest pain [Unknown]

NARRATIVE: CASE EVENT DATE: 20201120
